FAERS Safety Report 10199165 (Version 1)
Quarter: 2014Q2

REPORT INFORMATION
  Report Type: Spontaneous
  Country: FR (occurrence: FR)
  Receive Date: 20140527
  Receipt Date: 20140527
  Transmission Date: 20141212
  Serious: Yes (Hospitalization)
  Sender: FDA-Public Use
  Company Number: FR-BRISTOL-MYERS SQUIBB COMPANY-20799441

PATIENT
  Age: 50 Year
  Sex: Male

DRUGS (2)
  1. ABILIFY [Suspect]
     Dosage: JAN-2014,ABILIFY DOSE WAS DECREASED TO 5 MG DAILY
     Route: 048
     Dates: start: 20131101, end: 20140325
  2. DEPAKOTE [Concomitant]
     Dosage: 500 MG, ENTERIC COATED TABLET
     Route: 048
     Dates: start: 201210

REACTIONS (1)
  - Deep vein thrombosis [Not Recovered/Not Resolved]
